FAERS Safety Report 21849550 (Version 5)
Quarter: 2023Q2

REPORT INFORMATION
  Report Type: Report from Study
  Country: US (occurrence: US)
  Receive Date: 20230111
  Receipt Date: 20230421
  Transmission Date: 20230722
  Serious: Yes (Hospitalization)
  Sender: FDA-Public Use
  Company Number: US-PFIZER INC-2021-TRIL-00007

PATIENT
  Age: 59 Year
  Sex: Female
  Weight: 110 kg

DRUGS (14)
  1. INVESTIGATIONAL PRODUCT [Suspect]
     Active Substance: INVESTIGATIONAL PRODUCT
     Indication: Cutaneous T-cell lymphoma
     Dosage: 2 MG/KG, BIWEEKLY
     Route: 042
     Dates: start: 20210921, end: 20211005
  2. SOLU-MEDROL [Suspect]
     Active Substance: METHYLPREDNISOLONE SODIUM SUCCINATE
     Dosage: 100 MG, PREMED, 125 MG/2 MG INJECTION
     Route: 042
     Dates: start: 20211005, end: 20211005
  3. AMLODIPINE [Concomitant]
     Active Substance: AMLODIPINE BESYLATE
     Indication: Hypertension
     Dosage: 10 MG, QD
     Route: 048
     Dates: start: 20180514
  4. GABAPENTIN [Concomitant]
     Active Substance: GABAPENTIN
     Indication: Cutaneous T-cell lymphoma
     Dosage: 100 MG, TID
     Route: 048
     Dates: start: 20160831
  5. LOSARTAN [Concomitant]
     Active Substance: LOSARTAN
     Indication: Hypertension
     Dosage: UNK UNK, 1X/DAY
     Route: 048
     Dates: start: 20200821
  6. HYDROXYZINE HYDROCHLORIDE [Concomitant]
     Active Substance: HYDROXYZINE HYDROCHLORIDE
     Indication: Pruritus
     Dosage: 12.5 MG, PRN
     Route: 048
     Dates: start: 20171120
  7. LEVOTHYROXINE [Concomitant]
     Active Substance: LEVOTHYROXINE
     Indication: Hypothyroidism
     Dosage: 75 UG, AS NEEDED
     Route: 048
     Dates: start: 20160314
  8. OMEPRAZOLE [Concomitant]
     Active Substance: OMEPRAZOLE
     Indication: Gastrooesophageal reflux disease
     Dosage: 40 MG, PRN
     Route: 048
     Dates: start: 20160314
  9. HYDROCORTISONE [Concomitant]
     Active Substance: HYDROCORTISONE
     Indication: Cutaneous T-cell lymphoma
     Dosage: 2.5 %, PRN
     Route: 061
     Dates: start: 20161005
  10. MUPIROCIN CALCIUM [Concomitant]
     Active Substance: MUPIROCIN CALCIUM
     Indication: Cutaneous T-cell lymphoma
     Dosage: 2 %, PRN
     Route: 061
     Dates: start: 20171120
  11. MYCOLOG [Concomitant]
     Active Substance: GRAMICIDIN\NEOMYCIN SULFATE\NYSTATIN\TRIAMCINOLONE ACETONIDE
     Indication: Cutaneous T-cell lymphoma
     Dosage: UNK, AS NEEDED
     Route: 061
     Dates: start: 20200728
  12. XIIDRA [Concomitant]
     Active Substance: LIFITEGRAST
     Indication: Dry eye
     Dosage: UNK, 1X/DAY
     Route: 061
     Dates: start: 20180309
  13. TRIAMCINOLONE [Concomitant]
     Active Substance: TRIAMCINOLONE
     Indication: Cutaneous T-cell lymphoma
     Dosage: 0.1 %, PRN
     Route: 061
     Dates: start: 20160125
  14. ZYRTEC [Concomitant]
     Active Substance: CETIRIZINE HYDROCHLORIDE
     Indication: Rash maculo-papular
     Dosage: 10 MG, QD
     Route: 048
     Dates: start: 20211004

REACTIONS (1)
  - Gastritis [Recovered/Resolved]

NARRATIVE: CASE EVENT DATE: 20211007
